FAERS Safety Report 24677051 (Version 1)
Quarter: 2024Q4

REPORT INFORMATION
  Report Type: Spontaneous
  Country: US (occurrence: US)
  Receive Date: 20241129
  Receipt Date: 20241129
  Transmission Date: 20250114
  Serious: No
  Sender: CSL BEHRING
  Company Number: US-BEH-2024185796

PATIENT
  Sex: Male

DRUGS (20)
  1. HIZENTRA [Suspect]
     Active Substance: HUMAN IMMUNOGLOBULIN G
     Indication: Asthma
     Dosage: 22 G, EVERY 2 WEEKS
     Route: 058
  2. HIZENTRA [Suspect]
     Active Substance: HUMAN IMMUNOGLOBULIN G
     Indication: Off label use
  3. ELIQUIS [Concomitant]
     Active Substance: APIXABAN
  4. ASPIRIN [Concomitant]
     Active Substance: ASPIRIN
  5. LIPITOR [Concomitant]
     Active Substance: ATORVASTATIN CALCIUM
  6. PLAVIX [Concomitant]
     Active Substance: CLOPIDOGREL BISULFATE
  7. ATORVASTATIN [Concomitant]
     Active Substance: ATORVASTATIN
     Dosage: 10 MG
  8. CLOPIDOGREL [Concomitant]
     Active Substance: CLOPIDOGREL BISULFATE
     Dosage: 75 MG
  9. CIPROFLOXACIN [Concomitant]
     Active Substance: CIPROFLOXACIN
     Dosage: 0.3 %
  10. METOPROLOL [Concomitant]
     Active Substance: METOPROLOL
     Dosage: 100 MG
  11. GRAMICIDIN\NEOMYCIN\POLYMYXIN [Concomitant]
     Active Substance: GRAMICIDIN\NEOMYCIN\POLYMYXIN
  12. PREDNISOLONE [Concomitant]
     Active Substance: PREDNISOLONE
     Dosage: 1 %
  13. ORGOVYX [Concomitant]
     Active Substance: RELUGOLIX
  14. SOLIQUA 100/33 [Concomitant]
     Active Substance: INSULIN GLARGINE\LIXISENATIDE
  15. CEFDINIR [Concomitant]
     Active Substance: CEFDINIR
  16. NOVOLIN N [Concomitant]
     Active Substance: INSULIN HUMAN
  17. STARLIX [Concomitant]
     Active Substance: NATEGLINIDE
  18. DOXYCYCLINE [Concomitant]
     Active Substance: DOXYCYCLINE
  19. LEVAQUIN [Concomitant]
     Active Substance: LEVOFLOXACIN
  20. INVOKANA [Concomitant]
     Active Substance: CANAGLIFLOZIN

REACTIONS (2)
  - Dizziness [Unknown]
  - Off label use [Unknown]
